FAERS Safety Report 13866935 (Version 2)
Quarter: 2017Q4

REPORT INFORMATION
  Report Type: Spontaneous
  Country: IT (occurrence: IT)
  Receive Date: 20170814
  Receipt Date: 20171107
  Transmission Date: 20180320
  Serious: Yes (Hospitalization)
  Sender: FDA-Public Use
  Company Number: IT-SA-2017SA143000

PATIENT
  Age: 75 Year
  Sex: Male

DRUGS (9)
  1. CLEXANE T [Suspect]
     Active Substance: ENOXAPARIN SODIUM
     Indication: THROMBOSIS PROPHYLAXIS
     Route: 058
     Dates: end: 20170713
  2. AVODART [Concomitant]
     Active Substance: DUTASTERIDE
     Route: 048
  3. ATENOLOL. [Concomitant]
     Active Substance: ATENOLOL
     Route: 048
  4. UROREC [Concomitant]
     Active Substance: SILODOSIN
     Route: 048
  5. EUTIROX [Concomitant]
     Active Substance: LEVOTHYROXINE SODIUM
     Route: 048
  6. PANTOPRAZOLE SODIUM SESQUIHYDRATE [Concomitant]
     Active Substance: PANTOPRAZOLE SODIUM
     Route: 048
  7. DEPAKIN CHRONO [Concomitant]
     Active Substance: VALPROIC ACID
     Dosage: FORM: PROLONGED RELEASE TABLETS
     Route: 048
  8. EUTIROX [Concomitant]
     Active Substance: LEVOTHYROXINE SODIUM
     Route: 048
  9. COUMADIN [Suspect]
     Active Substance: WARFARIN SODIUM
     Indication: AORTIC VALVE REPLACEMENT
     Dosage: FORM: DIVISIBLE TABLETS
     Route: 048
     Dates: start: 20170711

REACTIONS (4)
  - Swelling [Recovering/Resolving]
  - Haematoma [Recovering/Resolving]
  - International normalised ratio [Recovering/Resolving]
  - Haemoglobin [Recovering/Resolving]

NARRATIVE: CASE EVENT DATE: 20170713
